FAERS Safety Report 4959554-9 (Version None)
Quarter: 2006Q1

REPORT INFORMATION
  Report Type: 
  Country: None (occurrence: None)
  Receive Date: 20060331
  Receipt Date: 20060321
  Transmission Date: 20060701
  Serious: Yes (Death, Congenital Anomaly)
  Sender: FDA-Public Use
  Company Number: AU-GLAXOSMITHKLINE-B0418441B

PATIENT
  Sex: Female

DRUGS (2)
  1. LAMICTAL [Suspect]
     Indication: EPILEPSY
  2. TOPAMAX [Suspect]
     Indication: EPILEPSY

REACTIONS (7)
  - CLEFT LIP [None]
  - CONGENITAL JAW MALFORMATION [None]
  - DRUG EXPOSURE DURING PREGNANCY [None]
  - FACIAL DYSMORPHISM [None]
  - HYPOXIC ENCEPHALOPATHY [None]
  - INTRA-UTERINE DEATH [None]
  - PUPILS UNEQUAL [None]
